FAERS Safety Report 15279886 (Version 1)
Quarter: 2018Q3

REPORT INFORMATION
  Report Type: Spontaneous
  Country: CL (occurrence: CL)
  Receive Date: 20180815
  Receipt Date: 20180815
  Transmission Date: 20181010
  Serious: Yes (Hospitalization)
  Sender: FDA-Public Use
  Company Number: CL-ROCHE-2170299

PATIENT
  Sex: Female

DRUGS (1)
  1. ACTILYSE [Suspect]
     Active Substance: ALTEPLASE
     Indication: CEREBROVASCULAR ACCIDENT
     Route: 065
     Dates: start: 20180730

REACTIONS (2)
  - Respiratory distress [Recovered/Resolved]
  - Delirium [Unknown]

NARRATIVE: CASE EVENT DATE: 20180801
